FAERS Safety Report 23911697 (Version 1)
Quarter: 2024Q2

REPORT INFORMATION
  Report Type: Spontaneous
  Country: US (occurrence: US)
  Receive Date: 20240528
  Receipt Date: 20240528
  Transmission Date: 20240715
  Serious: No
  Sender: FDA-Public Use
  Company Number: US-SA-SAC20240524000712

PATIENT
  Age: 55 Year
  Sex: Male

DRUGS (1)
  1. DUPIXENT [Suspect]
     Active Substance: DUPILUMAB
     Indication: Eczema
     Dosage: 300 MG, QOW
     Route: 058
     Dates: start: 202305

REACTIONS (5)
  - Erythema of eyelid [Unknown]
  - Eyelid skin dryness [Unknown]
  - Eyelid pain [Unknown]
  - Eyelids pruritus [Unknown]
  - Blepharitis [Unknown]

NARRATIVE: CASE EVENT DATE: 20240101
